FAERS Safety Report 20785220 (Version 1)
Quarter: 2022Q2

REPORT INFORMATION
  Report Type: Spontaneous
  Country: US (occurrence: None)
  Receive Date: 20220504
  Receipt Date: 20220504
  Transmission Date: 20220721
  Serious: No
  Sender: FDA-Public Use
  Company Number: None

PATIENT
  Age: 53 Year
  Sex: Female

DRUGS (1)
  1. CAPECITABINE [Suspect]
     Active Substance: CAPECITABINE
     Indication: Colon cancer
     Dosage: 1000 MG AM 1500MG  BID ORAL? ?
     Route: 048
     Dates: start: 202201, end: 202204

REACTIONS (5)
  - Fatigue [None]
  - Grip strength decreased [None]
  - Hypoacusis [None]
  - Visual impairment [None]
  - Feeling cold [None]

NARRATIVE: CASE EVENT DATE: 20220301
